FAERS Safety Report 15953801 (Version 2)
Quarter: 2019Q1

REPORT INFORMATION
  Report Type: Spontaneous
  Country: US (occurrence: US)
  Receive Date: 20190213
  Receipt Date: 20190215
  Transmission Date: 20190417
  Serious: No
  Sender: FDA-Public Use
  Company Number: US-SHIRE-US201904677

PATIENT
  Age: 67 Year
  Sex: Female
  Weight: 58.5 kg

DRUGS (4)
  1. GENTAL [Concomitant]
     Indication: DRY EYE
  2. XIIDRA [Suspect]
     Active Substance: LIFITEGRAST
     Indication: DRY EYE
     Dosage: 1 GTT DROPS, 2X/DAY:BID
     Route: 047
     Dates: start: 20190125, end: 20190126
  3. NEXIUM [Concomitant]
     Active Substance: ESOMEPRAZOLE MAGNESIUM
     Indication: GASTROOESOPHAGEAL REFLUX DISEASE
  4. OASIS TEARS [Concomitant]
     Active Substance: GLYCERIN
     Indication: DRY EYE

REACTIONS (4)
  - Vision blurred [Recovered/Resolved]
  - Instillation site pain [Unknown]
  - Instillation site pain [Recovered/Resolved]
  - Instillation site reaction [Recovered/Resolved]

NARRATIVE: CASE EVENT DATE: 20190125
